FAERS Safety Report 5496515-8 (Version None)
Quarter: 2007Q4

REPORT INFORMATION
  Report Type: 
  Country: None (occurrence: None)
  Receive Date: 20071025
  Receipt Date: 20070820
  Transmission Date: 20080405
  Serious: Yes (Other)
  Sender: FDA-Public Use
  Company Number: A0654761A

PATIENT
  Age: 34 Year
  Sex: Female
  Weight: 144.1 kg

DRUGS (2)
  1. ADVAIR DISKUS 100/50 [Suspect]
     Indication: ASTHMA
     Dosage: 1PUFF TWICE PER DAY
     Route: 048
     Dates: start: 20021202, end: 20070530
  2. STEROID INJECTIONS [Concomitant]
     Dates: start: 20070101

REACTIONS (4)
  - EYE PAIN [None]
  - GLAUCOMA [None]
  - HEADACHE [None]
  - INTRAOCULAR PRESSURE INCREASED [None]
